FAERS Safety Report 8471662-7 (Version None)
Quarter: 2012Q2

REPORT INFORMATION
  Report Type: 
  Country: None (occurrence: None)
  Receive Date: 20120323
  Receipt Date: 20111216
  Transmission Date: 20120825
  Serious: Yes (Other)
  Sender: FDA-Public Use
  Company Number: 163-21880-11110649

PATIENT
  Age: 65 Year
  Sex: Male

DRUGS (4)
  1. REVLIMID [Suspect]
     Dosage: 25 MG, QD X 21 DAYS/28 DAYS, PO, 20 MG, 4 IN 1 D, PO, 20 MG, 1 IN 1 D, PO
     Route: 048
     Dates: start: 20110101
  2. REVLIMID [Suspect]
     Dosage: 25 MG, QD X 21 DAYS/28 DAYS, PO, 20 MG, 4 IN 1 D, PO, 20 MG, 1 IN 1 D, PO
     Route: 048
     Dates: start: 20111101
  3. REVLIMID [Suspect]
     Dosage: 25 MG, QD X 21 DAYS/28 DAYS, PO, 20 MG, 4 IN 1 D, PO, 20 MG, 1 IN 1 D, PO
     Route: 048
     Dates: start: 20110912
  4. DEXAMETHASONE [Concomitant]

REACTIONS (1)
  - NEUTROPENIA [None]
